FAERS Safety Report 4677142-9 (Version None)
Quarter: 2005Q2

REPORT INFORMATION
  Report Type: 
  Country: None (occurrence: None)
  Receive Date: 20050525
  Receipt Date: 20050525
  Transmission Date: 20051028
  Serious: No
  Sender: FDA-Public Use
  Company Number: None

PATIENT
  Sex: Male
  Weight: 97.3 kg

DRUGS (2)
  1. FLUOROURACIL [Suspect]
     Indication: ANAL CANCER
     Dates: start: 20040816
  2. CISPLATIN [Suspect]

REACTIONS (8)
  - ANAL ULCER [None]
  - ATRIAL SEPTAL DEFECT [None]
  - BRADYCARDIA [None]
  - CARDIAC DISORDER [None]
  - HYPOXIA [None]
  - IMPAIRED HEALING [None]
  - PULMONARY HYPERTENSION [None]
  - RESPIRATORY DISORDER [None]
